FAERS Safety Report 23846539 (Version 1)
Quarter: 2024Q2

REPORT INFORMATION
  Report Type: Spontaneous
  Country: FR (occurrence: FR)
  Receive Date: 20240513
  Receipt Date: 20240513
  Transmission Date: 20240716
  Serious: Yes (Hospitalization, Other)
  Sender: FDA-Public Use
  Company Number: FR-BEIGENE-BGN-2024-006976

PATIENT

DRUGS (1)
  1. BRUKINSA [Suspect]
     Active Substance: ZANUBRUTINIB
     Indication: Waldenstrom^s macroglobulinaemia
     Dosage: 160 MILLIGRAM
     Dates: start: 202402, end: 20240507

REACTIONS (3)
  - Stress cardiomyopathy [Unknown]
  - Electrocardiogram QT prolonged [Unknown]
  - Sinus bradycardia [Unknown]
